FAERS Safety Report 20266823 (Version 3)
Quarter: 2022Q2

REPORT INFORMATION
  Report Type: Report from Study
  Country: US (occurrence: US)
  Receive Date: 20211231
  Receipt Date: 20220404
  Transmission Date: 20220721
  Serious: Yes (Hospitalization)
  Sender: FDA-Public Use
  Company Number: US-TAKEDA-2021TUS083168

PATIENT
  Sex: Female

DRUGS (4)
  1. TEDUGLUTIDE [Suspect]
     Active Substance: TEDUGLUTIDE
     Indication: Short-bowel syndrome
     Dosage: 0.33 MILLILITER, QD
     Route: 058
     Dates: start: 20210204
  2. TEDUGLUTIDE [Suspect]
     Active Substance: TEDUGLUTIDE
     Indication: Short-bowel syndrome
     Dosage: 0.33 MILLILITER, QD
     Route: 058
     Dates: start: 20210204
  3. TEDUGLUTIDE [Suspect]
     Active Substance: TEDUGLUTIDE
     Indication: Short-bowel syndrome
     Dosage: 0.33 MILLILITER, QD
     Route: 058
     Dates: start: 20210204
  4. TEDUGLUTIDE [Suspect]
     Active Substance: TEDUGLUTIDE
     Indication: Short-bowel syndrome
     Dosage: 0.33 MILLILITER, QD
     Route: 058
     Dates: start: 20210204

REACTIONS (4)
  - Hernia [Unknown]
  - Abnormal behaviour [Unknown]
  - Hospitalisation [Unknown]
  - Therapy interrupted [Unknown]
